FAERS Safety Report 8488341-2 (Version None)
Quarter: 2012Q3

REPORT INFORMATION
  Report Type: 
  Country: None (occurrence: None)
  Receive Date: 20120705
  Receipt Date: 20120703
  Transmission Date: 20120928
  Serious: Yes (Other)
  Sender: FDA-Public Use
  Company Number: PHHY2012CZ049781

PATIENT
  Age: 92 Year
  Sex: Male

DRUGS (3)
  1. LOZAP H [Concomitant]
     Dosage: 1 DF, DAILY
  2. LOSARTAN POTASSIUM [Concomitant]
     Dosage: 25 MG, DAILY
  3. ONBREZ [Suspect]
     Indication: CHRONIC OBSTRUCTIVE PULMONARY DISEASE
     Dosage: 300 UG, UNK

REACTIONS (3)
  - DYSPNOEA [None]
  - MACULAR DEGENERATION [None]
  - VISUAL IMPAIRMENT [None]
